FAERS Safety Report 19397862 (Version 1)
Quarter: 2021Q2

REPORT INFORMATION
  Report Type: Spontaneous
  Country: NO (occurrence: NO)
  Receive Date: 20210610
  Receipt Date: 20210610
  Transmission Date: 20210717
  Serious: Yes (Death, Other)
  Sender: FDA-Public Use
  Company Number: NO-BRISTOL-MYERS SQUIBB COMPANY-BMS-2021-055136

PATIENT
  Age: 47 Year
  Sex: Male
  Weight: 111 kg

DRUGS (1)
  1. NIVOLUMAB [Suspect]
     Active Substance: NIVOLUMAB
     Indication: ADENOCARCINOMA OF COLON
     Dosage: UNK
     Route: 042
     Dates: start: 20210113

REACTIONS (4)
  - Pneumonitis [Fatal]
  - Hepatitis [Fatal]
  - Pancreatitis [Fatal]
  - Adrenalitis [Fatal]

NARRATIVE: CASE EVENT DATE: 20210205
